FAERS Safety Report 4518616-0 (Version None)
Quarter: 2004Q4

REPORT INFORMATION
  Report Type: 
  Country: None (occurrence: None)
  Receive Date: 20041104
  Receipt Date: 20040721
  Transmission Date: 20050328
  Serious: Yes (Other)
  Sender: FDA-Public Use
  Company Number: PHEH2004US07593

PATIENT
  Sex: Female

DRUGS (8)
  1. ESTRADIOL [Suspect]
     Indication: HORMONE REPLACEMENT THERAPY
  2. MEDROXYPROGESTERONE ACETATE [Suspect]
     Indication: HORMONE REPLACEMENT THERAPY
  3. ... [Suspect]
     Indication: HORMONE REPLACEMENT THERAPY
  4. ESTRACE [Suspect]
  5. PREMPRO [Suspect]
  6. PREMARIN [Suspect]
  7. ESTROGENS SOL/INJ [Suspect]
  8. PROVERA [Suspect]

REACTIONS (2)
  - BREAST CANCER [None]
  - BREAST OPERATION [None]
